FAERS Safety Report 15393794 (Version 2)
Quarter: 2018Q3

REPORT INFORMATION
  Report Type: Spontaneous
  Country: IE (occurrence: IE)
  Receive Date: 20180917
  Receipt Date: 20180927
  Transmission Date: 20181010
  Serious: Yes (Hospitalization)
  Sender: FDA-Public Use
  Company Number: IE-009507513-1808IRL013329

PATIENT
  Age: 58 Year
  Sex: Female
  Weight: 73 kg

DRUGS (21)
  1. KEYTRUDA [Suspect]
     Active Substance: PEMBROLIZUMAB
     Dosage: PEMBROLIZUMAB 150MG, 22 DOSES OVER APPROXIMATELY 16 MONTHS BETWEEN 13?APR?2017 TO 20?JUL?2018
     Route: 042
     Dates: start: 20170413, end: 20180720
  2. STERILE WATER [Suspect]
     Active Substance: WATER
     Dosage: WATER FOR INJECTIONS COMPOUNDED WITH SODIUM CHLORIDE 0.9% AND PEMBROLIZUMAB 150MG22 DOSES OVER APPR
     Route: 042
     Dates: start: 20170413, end: 20180720
  3. STERILE WATER [Suspect]
     Active Substance: WATER
     Dosage: WATER FOR INJECTIONS COMPOUNDED WITH SODIUM CHLORIDE 0.9% AND PEMBROLIZUMAB 150MG22 DOSES OVER APPR
     Route: 042
     Dates: start: 20170413, end: 20180720
  4. SODIUM CHLORIDE. [Suspect]
     Active Substance: SODIUM CHLORIDE
     Dosage: SODIUM CHLORIDE 0.9% COMPOUNDED WITH PEMBROLIZUMAB 137.5MG
     Route: 042
     Dates: start: 20161007, end: 20170526
  5. SODIUM CHLORIDE. [Suspect]
     Active Substance: SODIUM CHLORIDE
     Dosage: SODIUM CHLORIDE 0.9% COMPOUNDED WITH PEMBROLIZUMAB 150MG, 22 DOSES OVER APPROXIMATELY 16 MONTHS BETW
     Route: 042
     Dates: start: 20170413, end: 20180720
  6. KEYTRUDA [Suspect]
     Active Substance: PEMBROLIZUMAB
     Indication: METASTATIC MALIGNANT MELANOMA
     Dosage: PEMBROLIZUMAB 150MG, 22 DOSES OVER APPROXIMATELY 16 MONTHS BETWEEN 13?APR?2017 TO 20?JUL?2018
     Route: 042
     Dates: start: 20170413, end: 20180720
  7. KEYTRUDA [Suspect]
     Active Substance: PEMBROLIZUMAB
     Dosage: PEMBROLIZUMAB 150MG, 22 DOSES OVER APPROXIMATELY 16 MONTHS BETWEEN 13?APR?2017 TO 20?JUL?2018
     Route: 042
     Dates: start: 20170413, end: 20180720
  8. SODIUM CHLORIDE. [Suspect]
     Active Substance: SODIUM CHLORIDE
     Indication: MEDICATION DILUTION
     Dosage: SODIUM CHLORIDE 0.9% COMPOUNDED WITH PEMBROLIZUMAB 137.5MG
     Route: 042
     Dates: start: 20161007, end: 20170526
  9. SODIUM CHLORIDE. [Suspect]
     Active Substance: SODIUM CHLORIDE
     Dosage: SODIUM CHLORIDE 0.9% COMPOUNDED WITH PEMBROLIZUMAB 150MG, 22 DOSES OVER APPROXIMATELY 16 MONTHS BETW
     Route: 042
     Dates: start: 20170413, end: 20180720
  10. KEYTRUDA [Suspect]
     Active Substance: PEMBROLIZUMAB
     Dosage: DOSE: 137.5 MG. KEYTRUDA (PEMBROLIZUMAB) 50 MG POWDER FOR CONCENTRATE SOLUTION FOR INFUSION
     Route: 042
     Dates: start: 20161007, end: 20170526
  11. STERILE WATER [Suspect]
     Active Substance: WATER
     Dosage: WATER FOR INJECTIONS COMPOUNDED WITH SODIUM CHLORIDE 0.9% AND PEMBROLIZUMAB 150MG22 DOSES OVER APPR
     Route: 042
     Dates: start: 20170413, end: 20180720
  12. XANAX [Concomitant]
     Active Substance: ALPRAZOLAM
     Indication: ANXIETY
     Dosage: AS NECESSARY
     Route: 065
     Dates: start: 2016
  13. KEYTRUDA [Suspect]
     Active Substance: PEMBROLIZUMAB
     Dosage: DOSE: 137.5 MG. KEYTRUDA (PEMBROLIZUMAB) 50 MG POWDER FOR CONCENTRATE SOLUTION FOR INFUSION
     Route: 042
     Dates: start: 20161007, end: 20170526
  14. STERILE WATER [Suspect]
     Active Substance: WATER
     Indication: MEDICATION DILUTION
     Dosage: WATER FOR INJECTIONS COMPOUNDED WITH SODIUM CHLORIDE 0.9% AND PEMBROLIZUMAB 137.5MG
     Route: 042
     Dates: start: 20161007, end: 20170526
  15. STERILE WATER [Suspect]
     Active Substance: WATER
     Dosage: WATER FOR INJECTIONS COMPOUNDED WITH SODIUM CHLORIDE 0.9% AND PEMBROLIZUMAB 137.5MG
     Route: 042
     Dates: start: 20161007, end: 20170526
  16. SODIUM CHLORIDE. [Suspect]
     Active Substance: SODIUM CHLORIDE
     Dosage: SODIUM CHLORIDE 0.9% COMPOUNDED WITH PEMBROLIZUMAB 137.5MG
     Route: 042
     Dates: start: 20161007, end: 20170526
  17. STERILE WATER [Suspect]
     Active Substance: WATER
     Dosage: WATER FOR INJECTIONS COMPOUNDED WITH SODIUM CHLORIDE 0.9% AND PEMBROLIZUMAB 137.5MG
     Route: 042
     Dates: start: 20161007, end: 20170526
  18. SODIUM CHLORIDE. [Suspect]
     Active Substance: SODIUM CHLORIDE
     Dosage: SODIUM CHLORIDE 0.9% COMPOUNDED WITH PEMBROLIZUMAB 150MG, 22 DOSES OVER APPROXIMATELY 16 MONTHS BETW
     Route: 042
     Dates: start: 20170413, end: 20180720
  19. KEYTRUDA [Suspect]
     Active Substance: PEMBROLIZUMAB
     Dosage: PEMBROLIZUMAB 150MG, 22 DOSES OVER APPROXIMATELY 16 MONTHS BETWEEN 13?APR?2017 TO 20?JUL?2018
     Route: 042
     Dates: start: 20170413, end: 20180720
  20. KEYTRUDA [Suspect]
     Active Substance: PEMBROLIZUMAB
     Dosage: DOSE: 137.5 MG. KEYTRUDA (PEMBROLIZUMAB) 50 MG POWDER FOR CONCENTRATE SOLUTION FOR INFUSION
     Route: 042
     Dates: start: 20161007, end: 20170526
  21. KEYTRUDA [Suspect]
     Active Substance: PEMBROLIZUMAB
     Dosage: DOSE: 137.5 MG. KEYTRUDA (PEMBROLIZUMAB) 50 MG POWDER FOR CONCENTRATE SOLUTION FOR INFUSION
     Route: 042
     Dates: start: 20161007, end: 20170526

REACTIONS (1)
  - Psoriasis [Unknown]
